FAERS Safety Report 5482261-3 (Version None)
Quarter: 2007Q4

REPORT INFORMATION
  Report Type: 
  Country: None (occurrence: None)
  Receive Date: 20071011
  Receipt Date: 20071001
  Transmission Date: 20080405
  Serious: Yes (Life-Threatening, Hospitalization)
  Sender: FDA-Public Use
  Company Number: JP-AMGEN-US239049

PATIENT
  Sex: Male
  Weight: 64 kg

DRUGS (15)
  1. ENBREL [Suspect]
     Indication: RHEUMATOID ARTHRITIS
     Route: 058
     Dates: start: 20050428, end: 20070807
  2. ALINAMIN [Concomitant]
     Route: 048
  3. LOXONIN [Concomitant]
     Indication: RHEUMATOID ARTHRITIS
     Route: 048
  4. SELBEX [Concomitant]
     Route: 048
  5. BONALON [Concomitant]
     Route: 048
  6. GLIMICRON [Concomitant]
     Indication: DIABETES MELLITUS
     Route: 048
  7. DIOVAN [Concomitant]
     Route: 048
  8. BASEN [Concomitant]
     Indication: DIABETES MELLITUS
     Route: 048
  9. ISCOTIN [Concomitant]
     Route: 048
  10. VOLTAREN [Concomitant]
     Indication: RHEUMATOID ARTHRITIS
     Dosage: UNKNOWN
     Route: 054
  11. MELBIN [Concomitant]
     Indication: DIABETES MELLITUS
     Route: 048
  12. NORVASC [Concomitant]
     Route: 048
  13. ASPIRIN [Concomitant]
     Route: 048
  14. VESICARE [Concomitant]
     Route: 048
  15. PREDONINE [Concomitant]
     Indication: RHEUMATOID ARTHRITIS
     Route: 048

REACTIONS (3)
  - CONDITION AGGRAVATED [None]
  - INTERSTITIAL LUNG DISEASE [None]
  - MULTIPLE SYSTEM ATROPHY [None]
